FAERS Safety Report 11205642 (Version 1)
Quarter: 2015Q2

REPORT INFORMATION
  Report Type: Spontaneous
  Country: US (occurrence: None)
  Receive Date: 20150618
  Receipt Date: 20150618
  Transmission Date: 20150821
  Serious: Yes (Hospitalization)
  Sender: FDA-Public Use
  Company Number: None

PATIENT
  Age: 84 Year
  Sex: Male
  Weight: 77.3 kg

DRUGS (1)
  1. CLINDAMYCIN [Suspect]
     Active Substance: CLINDAMYCIN\CLINDAMYCIN PHOSPHATE
     Indication: CELLULITIS
     Dosage: DATES OF USE: ~10/31/2015 THRU ~11/03/2015
     Route: 048

REACTIONS (3)
  - Clostridium difficile colitis [None]
  - Treatment failure [None]
  - Disease recurrence [None]

NARRATIVE: CASE EVENT DATE: 20150126
